FAERS Safety Report 8555706-X (Version None)
Quarter: 2012Q3

REPORT INFORMATION
  Report Type: 
  Country: None (occurrence: None)
  Receive Date: 20120801
  Receipt Date: 20120723
  Transmission Date: 20120928
  Serious: Yes (Other)
  Sender: FDA-Public Use
  Company Number: US-009507513-1207USA009873

PATIENT

DRUGS (1)
  1. ZOCOR [Suspect]

REACTIONS (4)
  - SUICIDAL IDEATION [None]
  - FATIGUE [None]
  - DEPRESSION [None]
  - GAIT DISTURBANCE [None]
